FAERS Safety Report 6101465-X (Version None)
Quarter: 2009Q1

REPORT INFORMATION
  Report Type: 
  Country: None (occurrence: None)
  Receive Date: 20090303
  Receipt Date: 20090303
  Transmission Date: 20090719
  Serious: No
  Sender: FDA-Public Use
  Company Number: None

PATIENT
  Sex: Female
  Weight: 99.7913 kg

DRUGS (3)
  1. EXFORGE [Suspect]
     Dosage: 320/10 ONE DAILY PO
     Route: 048
     Dates: start: 20081101
  2. EXFORGE [Suspect]
     Dosage: 320/10 ONE DAILY PO
     Route: 048
     Dates: start: 20081201
  3. EXFORGE [Suspect]
     Dosage: 320/10 ONE DAILY PO
     Route: 048
     Dates: start: 20090101

REACTIONS (1)
  - OEDEMA PERIPHERAL [None]
